FAERS Safety Report 7503896-X (Version None)
Quarter: 2011Q2

REPORT INFORMATION
  Report Type: 
  Country: None (occurrence: None)
  Receive Date: 20110518
  Receipt Date: 20110503
  Transmission Date: 20111010
  Serious: Yes (Hospitalization)
  Sender: FDA-Public Use
  Company Number: 2010003708

PATIENT
  Age: 53 Year
  Sex: Male
  Weight: 59 kg

DRUGS (21)
  1. DOLIPRAN (PARACETAMOL) [Concomitant]
  2. LOVENOX [Concomitant]
  3. PROPRANOLOL [Concomitant]
  4. DEXERYL (OSINEX) [Concomitant]
  5. ALDACTONE [Concomitant]
  6. LASIX [Concomitant]
  7. DIPROSONE [Concomitant]
  8. TRAMADOL HYDROCHLORIDE [Concomitant]
  9. ERYTHROMYCIN [Concomitant]
  10. ZEFFIX (LAMIVUDINE) [Concomitant]
  11. ERLOTINIB/PLACEBO (ERLOTINIB) (TABLET) (ERLOTINIB) [Suspect]
     Indication: HEPATIC NEOPLASM MALIGNANT
     Dosage: (150 MG,QD), ORAL
     Route: 048
     Dates: start: 20100805, end: 20100824
  12. DUPHALAC [Concomitant]
  13. NOROXIN [Concomitant]
  14. SORAFENIB (TABLET) [Suspect]
     Indication: HEPATIC NEOPLASM MALIGNANT
     Dosage: (400 MG,BID), ORAL
     Route: 048
     Dates: start: 20100903, end: 20100926
  15. SORAFENIB (TABLET) [Suspect]
     Indication: HEPATIC NEOPLASM MALIGNANT
     Dosage: (400 MG,BID), ORAL
     Route: 048
     Dates: start: 20100826, end: 20100902
  16. SORAFENIB (TABLET) [Suspect]
     Indication: HEPATIC NEOPLASM MALIGNANT
     Dosage: (400 MG,BID), ORAL
     Route: 048
     Dates: start: 20100805, end: 20100824
  17. ROCEPHIN [Concomitant]
  18. IOMERON-150 [Concomitant]
  19. XERIAL [Concomitant]
  20. IMODIUM (LOPREAMIDE HYDROCHLORIDE) [Concomitant]
  21. SALICYLVASELIN (SALICYLIC ACID) [Concomitant]

REACTIONS (8)
  - GENERAL PHYSICAL HEALTH DETERIORATION [None]
  - LOWER GASTROINTESTINAL HAEMORRHAGE [None]
  - HEPATIC NEOPLASM MALIGNANT [None]
  - VISUAL ACUITY REDUCED [None]
  - VARICES OESOPHAGEAL [None]
  - DISEASE PROGRESSION [None]
  - ABDOMINAL PAIN [None]
  - ASCITES [None]
